FAERS Safety Report 15675058 (Version 4)
Quarter: 2019Q2

REPORT INFORMATION
  Report Type: Spontaneous
  Country: US (occurrence: US)
  Receive Date: 20181130
  Receipt Date: 20190409
  Transmission Date: 20190711
  Serious: No
  Sender: FDA-Public Use
  Company Number: US-PFIZER INC-2018477839

PATIENT
  Weight: 82 kg

DRUGS (7)
  1. ASA [Concomitant]
     Active Substance: ASPIRIN
     Dosage: 81 MG, UNK
  2. INDERAL [Concomitant]
     Active Substance: PROPRANOLOL HYDROCHLORIDE
     Dosage: 75 MG, DAILY
  3. ATENOLOL. [Concomitant]
     Active Substance: ATENOLOL
     Dosage: 75 MG, DAILY (50 MG AND 25 MG IN THE MORNING)
  4. ALTACE [Suspect]
     Active Substance: RAMIPRIL
     Dosage: 10 MG, TWICE DAILY
  5. ATORVASTATIN [Concomitant]
     Active Substance: ATORVASTATIN
     Dosage: 80 MG, UNK
  6. ALTACE [Suspect]
     Active Substance: RAMIPRIL
     Dosage: 5 MG, UNK
  7. ASA [Concomitant]
     Active Substance: ASPIRIN
     Dosage: 325 MG, UNK

REACTIONS (5)
  - Blood potassium decreased [Unknown]
  - Cough [Recovered/Resolved]
  - Rhinorrhoea [Unknown]
  - Therapeutic product effect decreased [Unknown]
  - Hypertension [Unknown]
